FAERS Safety Report 7376379-8 (Version None)
Quarter: 2011Q1

REPORT INFORMATION
  Report Type: 
  Country: None (occurrence: None)
  Receive Date: 20110325
  Receipt Date: 20110228
  Transmission Date: 20110831
  Serious: Yes (Hospitalization, Other)
  Sender: FDA-Public Use
  Company Number: US-BAYER-201031830NA

PATIENT
  Sex: Female
  Weight: 86.168 kg

DRUGS (5)
  1. DICYCLOMINE [Concomitant]
     Indication: PAIN
  2. ANCEF [Concomitant]
     Dosage: UNK
     Dates: start: 20090313
  3. YAZ [Suspect]
     Indication: ORAL CONTRACEPTION
     Dosage: UNK
     Dates: start: 20060101, end: 20090101
  4. PRILOSEC [Concomitant]
     Indication: GASTROOESOPHAGEAL REFLUX DISEASE
  5. FIBERCON [Concomitant]

REACTIONS (13)
  - CHOLECYSTECTOMY [None]
  - GALLBLADDER CHOLESTEROLOSIS [None]
  - CHOLELITHIASIS [None]
  - MEDICAL DIET [None]
  - ABDOMINAL DISTENSION [None]
  - SCAR [None]
  - DIARRHOEA [None]
  - ANXIETY [None]
  - DEPRESSION [None]
  - CHOLECYSTITIS CHRONIC [None]
  - FLATULENCE [None]
  - DYSPEPSIA [None]
  - CONSTIPATION [None]
